FAERS Safety Report 7967940-8 (Version None)
Quarter: 2011Q4

REPORT INFORMATION
  Report Type: 
  Country: None (occurrence: None)
  Receive Date: 20111208
  Receipt Date: 20111208
  Transmission Date: 20120403
  Serious: Yes (Hospitalization)
  Sender: FDA-Public Use
  Company Number: None

PATIENT
  Age: 85 Year
  Sex: Female
  Weight: 57.67 kg

DRUGS (8)
  1. TRAMADOL HCL [Concomitant]
  2. LORAZEPAM [Concomitant]
  3. MULTI-VITAMIN [Concomitant]
  4. ONDANSETRON [Concomitant]
  5. CALCIUM VITAMIN D [Concomitant]
  6. CEPHALEXIN MONHYDRATE [Concomitant]
  7. SIMVASTATIN [Concomitant]
  8. AZACITIDINE [Suspect]
     Indication: CHRONIC MYELOID LEUKAEMIA
     Dosage: 75 MG/M2 DAYS 1-7
     Dates: start: 20111114, end: 20111120

REACTIONS (5)
  - FALL [None]
  - HAEMATOMA [None]
  - WOUND HAEMORRHAGE [None]
  - LACERATION [None]
  - HEAD INJURY [None]
